FAERS Safety Report 20035460 (Version 1)
Quarter: 2021Q4

REPORT INFORMATION
  Report Type: Spontaneous
  Country: US (occurrence: US)
  Receive Date: 20211104
  Receipt Date: 20211104
  Transmission Date: 20220303
  Serious: No
  Sender: FDA-Public Use
  Company Number: US-NOVOPROD-826187

PATIENT
  Age: 73 Year
  Sex: Female

DRUGS (2)
  1. FIASP [Suspect]
     Active Substance: INSULIN ASPART
     Indication: Diabetes mellitus
     Dosage: 50 IU, BID
     Route: 058
     Dates: start: 20210630, end: 20210712
  2. FUROSEMIDE [Concomitant]
     Active Substance: FUROSEMIDE
     Indication: Product used for unknown indication
     Dosage: 40 MG, BID
     Route: 065

REACTIONS (6)
  - Dyspnoea [Recovering/Resolving]
  - Pain in extremity [Unknown]
  - Peripheral swelling [Recovered/Resolved]
  - Peripheral swelling [Recovering/Resolving]
  - Weight increased [Recovering/Resolving]
  - Swelling [Recovering/Resolving]

NARRATIVE: CASE EVENT DATE: 20210706
